FAERS Safety Report 5691305-5 (Version None)
Quarter: 2008Q1

REPORT INFORMATION
  Report Type: 
  Country: None (occurrence: None)
  Receive Date: 20080331
  Receipt Date: 20080321
  Transmission Date: 20080703
  Serious: Yes (Other)
  Sender: FDA-Public Use
  Company Number: CHPA2008US05026

PATIENT
  Age: 73 Year
  Sex: Female

DRUGS (1)
  1. BUFFERIN REGULAR STRENGTH (NCH)(ACETYLSALICYLIC ACID) TABLET [Suspect]
     Indication: ARTHRITIS
     Dosage: 1950 MG, QD, ORAL
     Route: 048
     Dates: end: 20080318

REACTIONS (1)
  - DRUG DEPENDENCE [None]
